FAERS Safety Report 7531753-1 (Version None)
Quarter: 2011Q2

REPORT INFORMATION
  Report Type: 
  Country: None (occurrence: None)
  Receive Date: 20110608
  Receipt Date: 20110531
  Transmission Date: 20111010
  Serious: Yes (Hospitalization)
  Sender: FDA-Public Use
  Company Number: RU-ROCHE-740522

PATIENT
  Sex: Female
  Weight: 80 kg

DRUGS (5)
  1. TOCILIZUMAB [Suspect]
     Route: 042
     Dates: start: 20110218
  2. OMEPRAZOLE [Concomitant]
     Dates: start: 20091228
  3. METHOTREXATE [Suspect]
     Indication: RHEUMATOID ARTHRITIS
     Dosage: FORM PER PROTOCOL, LAST DOSE PRIOR TO SAE: 09 NOVEMBER 2010.
     Route: 048
     Dates: start: 20090121
  4. TOCILIZUMAB [Suspect]
     Indication: RHEUMATOID ARTHRITIS
     Dosage: FORM: INFUSION; FORM AND DOSE PER PROTOCOL; LAST DOSE PRIOR TO SAE: 02 SEPTEMBER 2010
     Route: 042
     Dates: start: 20100121, end: 20100930
  5. FOLIC ACID [Concomitant]
     Dates: start: 20050401

REACTIONS (1)
  - SKIN ULCER [None]
